FAERS Safety Report 9181152 (Version 1)
Quarter: 2013Q1

REPORT INFORMATION
  Report Type: Spontaneous
  Country: US (occurrence: US)
  Receive Date: 20130322
  Receipt Date: 20130322
  Transmission Date: 20140127
  Serious: Yes (Hospitalization)
  Sender: FDA-Public Use
  Company Number: US-BAYER-2013-033308

PATIENT
  Age: 41 Year
  Sex: Female

DRUGS (11)
  1. YASMIN [Suspect]
  2. LORAZEPAM [Concomitant]
  3. SERTRALINE [Concomitant]
     Dosage: 100 MG, UNK
  4. LEVORA [Concomitant]
     Indication: MENSTRUAL CYCLE MANAGEMENT
  5. ZOLOFT [Concomitant]
     Indication: DEPRESSION
  6. ZOLOFT [Concomitant]
     Indication: ANXIETY
  7. ZOLOFT [Concomitant]
     Indication: GRIEF REACTION
  8. ATIVAN [Concomitant]
     Indication: INSOMNIA
  9. AUGMENTIN [Concomitant]
  10. PAN-D [Concomitant]
  11. DOLO [Concomitant]
     Dosage: 650 MG, UNK

REACTIONS (1)
  - Deep vein thrombosis [None]
